FAERS Safety Report 25156935 (Version 2)
Quarter: 2025Q2

REPORT INFORMATION
  Report Type: Spontaneous
  Country: RU (occurrence: RU)
  Receive Date: 20250403
  Receipt Date: 20250404
  Transmission Date: 20250716
  Serious: Yes (Hospitalization, Other)
  Sender: SANOFI AVENTIS
  Company Number: RU-SA-2025SA094269

PATIENT
  Sex: Female

DRUGS (3)
  1. APIDRA [Suspect]
     Active Substance: INSULIN GLULISINE
  2. TOUJEO [Suspect]
     Active Substance: INSULIN GLARGINE
  3. INSULIN ASPART [Suspect]
     Active Substance: INSULIN ASPART

REACTIONS (6)
  - Hospitalisation [Unknown]
  - Loss of consciousness [Unknown]
  - Dizziness [Unknown]
  - Tremor [Unknown]
  - Fall [Unknown]
  - Injury [Unknown]
